FAERS Safety Report 12155801 (Version 4)
Quarter: 2016Q2

REPORT INFORMATION
  Report Type: Report from Study
  Country: CZ (occurrence: CZ)
  Receive Date: 20160307
  Receipt Date: 20160405
  Transmission Date: 20160815
  Serious: Yes (Death)
  Sender: FDA-Public Use
  Company Number: CZ-ABBVIE-16P-217-1575595-00

PATIENT
  Age: 70 Year
  Sex: Male
  Weight: 68 kg

DRUGS (4)
  1. ARICEPT [Concomitant]
     Active Substance: DONEPEZIL HYDROCHLORIDE
     Indication: COGNITIVE DISORDER
     Route: 048
     Dates: start: 2011
  2. DUODOPA [Suspect]
     Active Substance: CARBIDOPA\LEVODOPA
     Indication: PARKINSON^S DISEASE
     Dosage: MORNING DOSE: 13 ML;MAINTENANCE DOSE: 3.4 ML/HOUR; EXTRA DOSE:
     Route: 050
  3. KETILEPT [Concomitant]
     Indication: RESTLESSNESS
     Route: 048
     Dates: start: 2012
  4. EBIXA [Concomitant]
     Active Substance: MEMANTINE HYDROCHLORIDE
     Indication: COGNITIVE DISORDER
     Dosage: 2 X 10 MG
     Route: 048
     Dates: start: 2014

REACTIONS (2)
  - Death [Fatal]
  - Pneumonia [Fatal]

NARRATIVE: CASE EVENT DATE: 20160208
